FAERS Safety Report 21355289 (Version 1)
Quarter: 2022Q3

REPORT INFORMATION
  Report Type: Spontaneous
  Country: US (occurrence: None)
  Receive Date: 20220919
  Receipt Date: 20220919
  Transmission Date: 20221026
  Serious: Yes (Hospitalization)
  Sender: FDA-Public Use
  Company Number: None

PATIENT
  Sex: Male

DRUGS (1)
  1. CAPECITABINE [Suspect]
     Active Substance: CAPECITABINE
     Dosage: 1000 MG BID ORAL
     Route: 048

REACTIONS (8)
  - Neuropathy peripheral [None]
  - Dyspnoea [None]
  - Walking aid user [None]
  - Haemoglobin decreased [None]
  - Red blood cell count decreased [None]
  - COVID-19 [None]
  - Therapy interrupted [None]
  - Fall [None]
